FAERS Safety Report 21636568 (Version 4)
Quarter: 2022Q4

REPORT INFORMATION
  Report Type: Spontaneous
  Country: HU (occurrence: HU)
  Receive Date: 20221124
  Receipt Date: 20221231
  Transmission Date: 20230113
  Serious: No
  Sender: FDA-Public Use
  Company Number: HU-002147023-NVSC2022HU262268

PATIENT
  Sex: Male
  Weight: 4.9 kg

DRUGS (3)
  1. ZOLGENSMA [Suspect]
     Active Substance: ONASEMNOGENE ABEPARVOVEC-XIOI
     Indication: Spinal muscular atrophy
     Dosage: 1X27.6 ML, ONCE/SINGLE
     Route: 042
     Dates: start: 20220929
  2. PREDNISOLONE [Concomitant]
     Active Substance: PREDNISOLONE
     Indication: Immunosuppression
     Dosage: 1 MG/KG, QD
     Route: 054
     Dates: start: 20220928
  3. FAMOTIDINE [Concomitant]
     Active Substance: FAMOTIDINE
     Indication: Product used for unknown indication
     Dosage: UNK, QD 2X0.5 MG/KG (SUSPENSION)
     Route: 048
     Dates: start: 20220928

REACTIONS (5)
  - Fluid intake reduced [Recovered/Resolved]
  - Troponin I increased [Recovered/Resolved]
  - Pyrexia [Recovered/Resolved]
  - Platelet count increased [Recovered/Resolved]
  - Blood creatinine decreased [Recovered/Resolved]

NARRATIVE: CASE EVENT DATE: 20221002
